FAERS Safety Report 10048002 (Version 1)
Quarter: 2014Q1

REPORT INFORMATION
  Report Type: Report from Study
  Country: US (occurrence: US)
  Receive Date: 20140331
  Receipt Date: 20140331
  Transmission Date: 20141002
  Serious: Yes (Other)
  Sender: FDA-Public Use
  Company Number: US-GILEAD-2014-0097640

PATIENT
  Age: 40 Year
  Sex: Female

DRUGS (3)
  1. EMTRICITABINE/TENOFOVIR DISOPROXIL FUMARATE [Suspect]
     Indication: HIV INFECTION
     Dosage: 1 DF, QD
     Route: 048
     Dates: end: 20131112
  2. NEVIRAPINE [Suspect]
     Indication: HIV INFECTION
     Dosage: 400 MG, UNK
     Route: 048
  3. EPZICOM [Suspect]
     Indication: HIV INFECTION
     Dosage: 1 DF, QD
     Route: 048
     Dates: start: 20131112

REACTIONS (5)
  - Abortion spontaneous [Recovered/Resolved]
  - Disseminated tuberculosis [Unknown]
  - Oligohydramnios [Unknown]
  - Oligohydramnios [Unknown]
  - Ascites [Unknown]
